FAERS Safety Report 20600926 (Version 3)
Quarter: 2022Q2

REPORT INFORMATION
  Report Type: Report from Study
  Country: US (occurrence: US)
  Receive Date: 20220316
  Receipt Date: 20220411
  Transmission Date: 20220721
  Serious: No
  Sender: FDA-Public Use
  Company Number: US-KYOWAKIRIN-2022BKK003529

PATIENT

DRUGS (6)
  1. CRYSVITA [Suspect]
     Active Substance: BUROSUMAB-TWZA
     Indication: Hereditary hypophosphataemic rickets
     Dosage: 70 MG (STRENGTH 20MG AND 30MG COMBINED), EVERY 28 DAYS
     Route: 065
     Dates: start: 20220302
  2. CRYSVITA [Suspect]
     Active Substance: BUROSUMAB-TWZA
     Dosage: 70 MG (STRENGTH 20MG AND 30MG COMBINED), EVERY 28 DAYS
     Route: 065
     Dates: start: 20201010
  3. CRYSVITA [Suspect]
     Active Substance: BUROSUMAB-TWZA
     Indication: Hereditary hypophosphataemic rickets
     Dosage: 70 MG (STRENGTH 30MG AND 20MG COMBINED), EVERY 28 DAYS
     Route: 065
     Dates: start: 20220302
  4. CRYSVITA [Suspect]
     Active Substance: BUROSUMAB-TWZA
     Dosage: 70 MG (STRENGTH 30MG AND 10MG COMBINED), EVERY 28 DAYS
     Route: 058
     Dates: start: 20220209
  5. CRYSVITA [Suspect]
     Active Substance: BUROSUMAB-TWZA
     Dosage: 70 MG (STRENGTH 30MG AND 20MG COMBINED), EVERY 28 DAYS
     Route: 065
     Dates: start: 20201010
  6. CRYSVITA [Suspect]
     Active Substance: BUROSUMAB-TWZA
     Indication: Hereditary hypophosphataemic rickets
     Dosage: 70 MG (STRENGTH 30MG AND 10MG COMBINED), EVERY 28 DAYS
     Route: 058
     Dates: start: 20220209

REACTIONS (2)
  - Abdominal pain upper [Recovered/Resolved]
  - Muscle spasms [Recovered/Resolved]

NARRATIVE: CASE EVENT DATE: 20220302
